FAERS Safety Report 24466569 (Version 1)
Quarter: 2024Q4

REPORT INFORMATION
  Report Type: Spontaneous
  Country: JP (occurrence: None)
  Receive Date: 20241018
  Receipt Date: 20241018
  Transmission Date: 20250115
  Serious: Yes (Hospitalization, Other)
  Sender: INFORLIFE
  Company Number: JP-INFO-20240316

PATIENT
  Age: 8 Decade
  Sex: Male

DRUGS (6)
  1. MEROPENEM [Suspect]
     Active Substance: MEROPENEM
     Indication: Decubitus ulcer
     Dosage: ON DAY X?30 ()
  2. LEVOFLOXACIN [Suspect]
     Active Substance: LEVOFLOXACIN
     Indication: Pyrexia
     Dosage: ON DAY X?18 ()
  3. VANCOMYCIN [Suspect]
     Active Substance: VANCOMYCIN
     Indication: Decubitus ulcer
  4. PIPERACILLIN SODIUM\TAZOBACTAM SODIUM [Suspect]
     Active Substance: PIPERACILLIN SODIUM\TAZOBACTAM SODIUM
     Indication: Decubitus ulcer
     Dosage: ON DAY X ()
  5. PIPERACILLIN SODIUM\TAZOBACTAM SODIUM [Suspect]
     Active Substance: PIPERACILLIN SODIUM\TAZOBACTAM SODIUM
     Indication: Decubitus ulcer
     Dosage: (3.5G/D)
  6. SAXAGLIPTIN [Concomitant]
     Active Substance: SAXAGLIPTIN
     Indication: Diabetes mellitus

REACTIONS (1)
  - Superinfection bacterial [Recovered/Resolved]
